FAERS Safety Report 10745451 (Version 1)
Quarter: 2015Q1

REPORT INFORMATION
  Report Type: Spontaneous
  Country: US (occurrence: None)
  Receive Date: 20150115
  Receipt Date: 20150115
  Transmission Date: 20150721
  Serious: Yes (Other)
  Sender: FDA-Public Use
  Company Number: JHP201400117

PATIENT
  Sex: Female

DRUGS (1)
  1. PITOCIN [Suspect]
     Active Substance: OXYTOCIN
     Route: 042
     Dates: start: 2014, end: 2014

REACTIONS (1)
  - Haemorrhage [None]

NARRATIVE: CASE EVENT DATE: 2014
